FAERS Safety Report 8568466 (Version 6)
Quarter: 2014Q1

REPORT INFORMATION
  Report Type: Spontaneous
  Country: IE (occurrence: IE)
  Receive Date: 20120518
  Receipt Date: 20140123
  Transmission Date: 20141002
  Serious: Yes (Hospitalization, Other)
  Sender: FDA-Public Use
  Company Number: PHFR2012IE001237

PATIENT
  Age: 37 Year
  Sex: Female

DRUGS (3)
  1. CLOZARIL [Suspect]
     Indication: SCHIZOPHRENIA
     Dosage: 425 MG, DAILY
     Route: 048
     Dates: start: 20061124
  2. CLOZARIL [Suspect]
     Dosage: 425 MG, DAILY
     Route: 048
     Dates: start: 2007
  3. CITALOPRAM [Concomitant]
     Indication: ANXIETY
     Dosage: 40 MG, DAILY

REACTIONS (3)
  - Uterine leiomyoma [Recovered/Resolved]
  - Menorrhagia [Not Recovered/Not Resolved]
  - Anaemia [Recovered/Resolved]
